FAERS Safety Report 5318388-6 (Version None)
Quarter: 2007Q2

REPORT INFORMATION
  Report Type: 
  Country: None (occurrence: None)
  Receive Date: 20070507
  Receipt Date: 20070426
  Transmission Date: 20071010
  Serious: Yes (Other)
  Sender: FDA-Public Use
  Company Number: US-GENENTECH-240897

PATIENT
  Sex: Female
  Weight: 86.168 kg

DRUGS (10)
  1. RITUXAN [Suspect]
     Indication: RHEUMATOID ARTHRITIS
     Dates: start: 20061107, end: 20061107
  2. RITUXAN [Suspect]
     Dates: start: 20061121, end: 20061121
  3. PREDNISONE TAB [Suspect]
     Indication: RHEUMATOID ARTHRITIS
  4. TYLENOL [Suspect]
     Indication: RHEUMATOID ARTHRITIS
  5. METHOTREXATE [Concomitant]
     Indication: DRUG USE FOR UNKNOWN INDICATION
  6. PENICILLIN [Concomitant]
     Indication: DRUG USE FOR UNKNOWN INDICATION
  7. SULFA ANTIBIOTIC (UNK INGREDIENTS) [Concomitant]
     Indication: DRUG USE FOR UNKNOWN INDICATION
  8. MACROBID [Concomitant]
     Indication: DRUG USE FOR UNKNOWN INDICATION
  9. RELAFEN [Concomitant]
     Indication: DRUG USE FOR UNKNOWN INDICATION
  10. CIPRO [Concomitant]
     Indication: DRUG USE FOR UNKNOWN INDICATION

REACTIONS (1)
  - ACUTE RESPIRATORY DISTRESS SYNDROME [None]
